FAERS Safety Report 18967802 (Version 1)
Quarter: 2021Q1

REPORT INFORMATION
  Report Type: Report from Study
  Country: GB (occurrence: GB)
  Receive Date: 20210304
  Receipt Date: 20210304
  Transmission Date: 20210420
  Serious: Yes (Other)
  Sender: FDA-Public Use
  Company Number: GB-SAMSUNG BIOEPIS-SB-2021-05498

PATIENT
  Sex: Female

DRUGS (1)
  1. IMRALDI [Suspect]
     Active Substance: ADALIMUMAB
     Indication: COLITIS ULCERATIVE
     Dosage: WEEK ZERO
     Route: 058
     Dates: start: 20210223

REACTIONS (4)
  - Dizziness [Unknown]
  - Malaise [Unknown]
  - Feeling hot [Unknown]
  - Asymptomatic COVID-19 [Unknown]
